FAERS Safety Report 9419821 (Version 1)
Quarter: 2013Q3

REPORT INFORMATION
  Report Type: Spontaneous
  Country: ES (occurrence: ES)
  Receive Date: 20130725
  Receipt Date: 20130725
  Transmission Date: 20140515
  Serious: Yes (Hospitalization)
  Sender: FDA-Public Use
  Company Number: ES-009507513-1307ESP010814

PATIENT
  Age: 55 Year
  Sex: Male

DRUGS (7)
  1. VICTRELIS [Suspect]
     Indication: HEPATITIS C
     Dosage: 2400 MG
     Route: 048
     Dates: start: 201303
  2. VICTRELIS [Suspect]
     Dosage: UNK
  3. VICTRELIS [Suspect]
     Indication: HEPATITIS C
     Dosage: 1800 MG
     Route: 048
  4. REBETOL [Suspect]
     Indication: HEPATITIS C
     Dosage: 1200 MG
     Route: 048
     Dates: start: 201302, end: 201305
  5. REBETOL [Suspect]
     Dosage: 600 MG
     Route: 048
     Dates: start: 201305
  6. PEGINTRON [Suspect]
     Indication: HEPATITIS C
     Dosage: UNK, QW
     Route: 058
     Dates: start: 201302, end: 201304
  7. PEGINTRON [Suspect]
     Indication: HEPATITIS C
     Dosage: UNK, QW
     Route: 058
     Dates: start: 201304

REACTIONS (12)
  - Thrombophlebitis [Recovered/Resolved]
  - Pyrexia [Not Recovered/Not Resolved]
  - Scar pain [Recovered/Resolved]
  - Anaemia [Unknown]
  - Neutropenia [Unknown]
  - Asthenia [Unknown]
  - Dysgeusia [Unknown]
  - Decreased appetite [Recovered/Resolved with Sequelae]
  - Influenza like illness [Recovered/Resolved with Sequelae]
  - Varicose vein [Recovered/Resolved]
  - Anaemia [Unknown]
  - Neutropenia [Unknown]
